FAERS Safety Report 9130444 (Version 3)
Quarter: 2013Q2

REPORT INFORMATION
  Report Type: Spontaneous
  Country: US (occurrence: US)
  Receive Date: 20130301
  Receipt Date: 20130423
  Transmission Date: 20140414
  Serious: Yes (Hospitalization, Other)
  Sender: FDA-Public Use
  Company Number: US-009507513-1302USA011766

PATIENT
  Sex: Male
  Weight: 70.3 kg

DRUGS (2)
  1. PEGINTRON [Suspect]
     Indication: HEPATITIS C
     Dosage: UNK
     Dates: start: 20130207, end: 20130228
  2. REBETOL [Suspect]
     Indication: HEPATITIS C
     Dosage: UNK
     Route: 048
     Dates: start: 20130207, end: 20130228

REACTIONS (16)
  - Fall [Unknown]
  - Syncope [Unknown]
  - Decreased appetite [Unknown]
  - Malaise [Unknown]
  - Influenza like illness [Unknown]
  - Malaise [Unknown]
  - Fatigue [Unknown]
  - Decreased appetite [Unknown]
  - Weight decreased [Unknown]
  - Hypotension [Unknown]
  - Memory impairment [Unknown]
  - Somnolence [Unknown]
  - Decreased appetite [Unknown]
  - Balance disorder [Unknown]
  - Ataxia [Unknown]
  - Weight decreased [Unknown]
